FAERS Safety Report 8500545-9 (Version None)
Quarter: 2012Q3

REPORT INFORMATION
  Report Type: 
  Country: None (occurrence: None)
  Receive Date: 20120710
  Receipt Date: 20120627
  Transmission Date: 20120928
  Serious: Yes (Hospitalization)
  Sender: FDA-Public Use
  Company Number: US-ROCHE-1082614

PATIENT
  Sex: Female
  Weight: 56.9 kg

DRUGS (13)
  1. CARBOPLATIN [Suspect]
     Indication: OVARIAN CANCER
     Dosage: AUC-6
     Route: 042
     Dates: start: 20120611
  2. AVASTIN [Suspect]
     Indication: OVARIAN CANCER
     Route: 042
     Dates: start: 20120611, end: 20120611
  3. LIPITOR [Concomitant]
     Dosage: AT NIGHT
     Dates: start: 20030101
  4. METOPROLOL SLOW RELEASE [Concomitant]
     Dates: start: 20120620
  5. BENICAR HCT [Concomitant]
     Dates: start: 20120620
  6. VENTOLIN [Concomitant]
     Dosage: 1 PUFF EVERY 6 HOURS
  7. METOPROLOL SLOW RELEASE [Concomitant]
     Dates: start: 20060101
  8. SPIRIVA [Concomitant]
     Dosage: INHALER, DAILY
  9. MAGNESIUM SULFATE [Concomitant]
     Route: 048
  10. ADVAIR DISKUS 100/50 [Concomitant]
     Dosage: 1 PUFF EVERY 12 HOURS.
  11. BENICAR HCT [Concomitant]
     Dosage: 40/25 MG, DAILY
  12. ASPIRIN [Concomitant]
     Dates: start: 20070101
  13. PACLITAXEL [Suspect]
     Indication: OVARIAN CANCER
     Route: 042
     Dates: start: 20120611, end: 20120611

REACTIONS (5)
  - HAEMOGLOBIN DECREASED [None]
  - BLOOD MAGNESIUM DECREASED [None]
  - BLOOD CALCIUM DECREASED [None]
  - NEUTROPHIL COUNT DECREASED [None]
  - BLOOD SODIUM DECREASED [None]
